FAERS Safety Report 24666135 (Version 4)
Quarter: 2025Q1

REPORT INFORMATION
  Report Type: Spontaneous
  Country: CA (occurrence: CA)
  Receive Date: 20241126
  Receipt Date: 20250120
  Transmission Date: 20250409
  Serious: Yes (Other)
  Sender: PFIZER
  Company Number: CA-PFIZER INC-202400103531

PATIENT
  Age: 56 Year
  Sex: Female

DRUGS (9)
  1. RUXIENCE [Suspect]
     Active Substance: RITUXIMAB-PVVR
     Indication: Granulomatosis with polyangiitis
     Dosage: FOR 4 DOSES
     Route: 042
     Dates: start: 20240418
  2. RUXIENCE [Suspect]
     Active Substance: RITUXIMAB-PVVR
     Dosage: FOR 4 DOSES
     Route: 042
     Dates: start: 20240502
  3. RUXIENCE [Suspect]
     Active Substance: RITUXIMAB-PVVR
     Dosage: FOR 4 DOSES (AFTER 2 WEEKS/ 1 WEEK 6 DAYS AFTER)
     Route: 042
     Dates: start: 20240515
  4. RUXIENCE [Suspect]
     Active Substance: RITUXIMAB-PVVR
     Dosage: FOR 4 DOSES (AFTER 2 WEEKS/ 1 WEEK 6 DAYS AFTER)
     Route: 042
     Dates: start: 20240515
  5. RUXIENCE [Suspect]
     Active Substance: RITUXIMAB-PVVR
     Dosage: FOR 4 DOSES
     Route: 042
     Dates: start: 20241120
  6. RUXIENCE [Suspect]
     Active Substance: RITUXIMAB-PVVR
     Dosage: FOR 4 DOSES
     Route: 042
     Dates: start: 20241120, end: 202411
  7. ACETAMINOPHEN [Concomitant]
     Active Substance: ACETAMINOPHEN
     Indication: Premedication
     Dates: start: 20241120, end: 20241120
  8. DIPHENHYDRAMINE [Concomitant]
     Active Substance: DIPHENHYDRAMINE
     Indication: Premedication
     Dates: start: 20241120, end: 20241120
  9. METHYLPREDNISOLONE [Concomitant]
     Active Substance: METHYLPREDNISOLONE
     Indication: Premedication
     Dates: start: 20241120, end: 20241120

REACTIONS (10)
  - Oxygen saturation decreased [Unknown]
  - Hypotension [Recovering/Resolving]
  - Cough [Not Recovered/Not Resolved]
  - Oropharyngeal pain [Not Recovered/Not Resolved]
  - Influenza [Recovered/Resolved]
  - Body temperature decreased [Unknown]
  - Muscle twitching [Recovering/Resolving]
  - Swelling [Recovering/Resolving]
  - Decreased appetite [Recovering/Resolving]
  - Hypersomnia [Recovering/Resolving]

NARRATIVE: CASE EVENT DATE: 20240101
